FAERS Safety Report 5722410-2 (Version None)
Quarter: 2008Q2

REPORT INFORMATION
  Report Type: 
  Country: None (occurrence: None)
  Receive Date: 20080429
  Receipt Date: 20071114
  Transmission Date: 20081010
  Serious: No
  Sender: FDA-Public Use
  Company Number: US-ASTRAZENECA-2007UW26434

PATIENT
  Age: 49 Year
  Sex: Male
  Weight: 94.8 kg

DRUGS (3)
  1. NEXIUM [Suspect]
     Indication: PHARYNGOLARYNGEAL PAIN
     Route: 048
  2. NEXIUM [Suspect]
     Indication: GASTROOESOPHAGEAL REFLUX DISEASE
     Route: 048
  3. AVALIDE [Concomitant]

REACTIONS (6)
  - BACK PAIN [None]
  - CHEST PAIN [None]
  - DYSPNOEA [None]
  - FATIGUE [None]
  - NASAL CONGESTION [None]
  - PHARYNGEAL OEDEMA [None]
